FAERS Safety Report 11799532 (Version 1)
Quarter: 2015Q4

REPORT INFORMATION
  Report Type: Spontaneous
  Country: US (occurrence: US)
  Receive Date: 20151203
  Receipt Date: 20151203
  Transmission Date: 20160305
  Serious: Yes (Other)
  Sender: FDA-Public Use
  Company Number: US-AMGEN-USASP2015100507

PATIENT
  Age: 29 Year
  Sex: Male
  Weight: 59.1 kg

DRUGS (9)
  1. POSACONAZOLE [Concomitant]
     Active Substance: POSACONAZOLE
     Indication: PROPHYLAXIS
     Dosage: 300 MG, QD
     Route: 048
     Dates: start: 20150914
  2. BLINCYTO [Suspect]
     Active Substance: BLINATUMOMAB
     Indication: ACUTE LYMPHOCYTIC LEUKAEMIA
     Dosage: 9 MUG, CONTINUOUS INFUSION OVER 24 HOURS
     Route: 042
     Dates: start: 20150617
  3. DEXAMETHASONE. [Concomitant]
     Active Substance: DEXAMETHASONE
     Indication: PREMEDICATION
     Dosage: 20 MG, ONE TIME DOSE
     Route: 042
     Dates: start: 20150914, end: 20150914
  4. ASPARAGINASE [Concomitant]
     Active Substance: ASPARAGINASE
     Indication: ACUTE LYMPHOCYTIC LEUKAEMIA
  5. DAUNORUBICIN [Concomitant]
     Active Substance: DAUNORUBICIN
     Indication: ACUTE LYMPHOCYTIC LEUKAEMIA
  6. RANITIDINE [Concomitant]
     Active Substance: RANITIDINE\RANITIDINE HYDROCHLORIDE
     Indication: GASTROOESOPHAGEAL REFLUX DISEASE
     Dosage: 150 MG, UNK
     Route: 048
     Dates: start: 20150914
  7. PREDNISONE. [Concomitant]
     Active Substance: PREDNISONE
     Indication: ACUTE LYMPHOCYTIC LEUKAEMIA
  8. ACYCLOVIR                          /00587301/ [Concomitant]
     Active Substance: ACYCLOVIR
     Indication: PROPHYLAXIS
     Dosage: 400 MG, BID
     Route: 048
     Dates: start: 20150914
  9. HYPER CVAD [Concomitant]
     Active Substance: CYCLOPHOSPHAMIDE\CYTARABINE\DEXAMETHASONE\DOXORUBICIN\METHOTREXATE\VINCRISTINE
     Indication: ACUTE LYMPHOCYTIC LEUKAEMIA
     Dosage: UNK

REACTIONS (4)
  - Liver function test abnormal [Recovered/Resolved]
  - Headache [Recovered/Resolved]
  - Pyrexia [Recovered/Resolved]
  - Neurotoxicity [Unknown]

NARRATIVE: CASE EVENT DATE: 20150915
